FAERS Safety Report 15165487 (Version 1)
Quarter: 2018Q3

REPORT INFORMATION
  Report Type: Report from Study
  Country: DE (occurrence: DE)
  Receive Date: 20180719
  Receipt Date: 20180719
  Transmission Date: 20181010
  Serious: Yes (Other)
  Sender: FDA-Public Use
  Company Number: DE-TEVA-2018-DE-927769

PATIENT
  Age: 43 Year
  Sex: Male
  Weight: 93 kg

DRUGS (9)
  1. VITAMIN B12 [Concomitant]
     Active Substance: CYANOCOBALAMIN
     Indication: PROPHYLAXIS
     Dosage: DAILY DOSE: 1 MG MILLGRAM(S) EVERY 9 WEEKS
     Route: 058
     Dates: start: 20150327
  2. DEXAMETHASON [Concomitant]
     Active Substance: DEXAMETHASONE
     Indication: PROPHYLAXIS
     Dosage: 52 MG IN TOTAL ORAL AND IV
     Route: 048
     Dates: start: 20150427
  3. AVASTIN [Suspect]
     Active Substance: BEVACIZUMAB
     Indication: BRONCHIAL CARCINOMA
     Dosage: LAST DOSE OF BEVACIZUMAB PRIOR TO SAE: 29/JUN/2015.
     Route: 042
     Dates: start: 20150427
  4. CARBOPLATIN. [Suspect]
     Active Substance: CARBOPLATIN
     Indication: BRONCHIAL CARCINOMA
     Dosage: DAILY DOSE: 692 MG MILLGRAM(S) EVERY 3 WEEKS
     Route: 042
     Dates: start: 20150518
  5. PALONOSETRON. [Concomitant]
     Active Substance: PALONOSETRON HYDROCHLORIDE
     Indication: PROPHYLAXIS
     Dosage: DAILY DOSE: 0.25 MG MILLGRAM(S) EVERY 3 WEEKS
     Route: 042
     Dates: start: 20150427
  6. DEXAMETHASON [Concomitant]
     Active Substance: DEXAMETHASONE
     Dosage: 52 MG IN TOTAL ORAL AND IV
     Route: 042
     Dates: start: 20150427
  7. PEMETREXED. [Suspect]
     Active Substance: PEMETREXED
     Indication: BRONCHIAL CARCINOMA
     Dosage: DAILY DOSE: 1000 MG MILLGRAM(S) EVERY 3 WEEKS
     Route: 042
     Dates: start: 20150427
  8. FOLSAN [Concomitant]
     Active Substance: FOLIC ACID
     Indication: PROPHYLAXIS
     Dosage: .4 MILLIGRAM DAILY; DAILY DOSE: 0.4 MG MILLGRAM(S) EVERY DAYS
     Route: 048
     Dates: start: 20150426
  9. APREPITANT. [Concomitant]
     Active Substance: APREPITANT
     Indication: PROPHYLAXIS
     Dosage: DAILY DOSE: 285 MG MILLGRAM(S) EVERY 3 WEEKS
     Route: 048
     Dates: start: 20150427

REACTIONS (1)
  - Pulmonary embolism [Recovered/Resolved]

NARRATIVE: CASE EVENT DATE: 20150710
